FAERS Safety Report 9371616 (Version 2)
Quarter: 2013Q3

REPORT INFORMATION
  Report Type: Spontaneous
  Country: GR (occurrence: GR)
  Receive Date: 20130627
  Receipt Date: 20130710
  Transmission Date: 20140515
  Serious: Yes (Death, Hospitalization)
  Sender: FDA-Public Use
  Company Number: PHHY2013GR065895

PATIENT
  Age: 72 Year
  Sex: Female

DRUGS (4)
  1. STALEVO [Suspect]
     Indication: PARKINSON^S DISEASE
     Dosage: 650 MG, DAILY (1X200 MG PLUS 3X150 MG)
  2. LYRICA [Concomitant]
  3. ANTIHYPERTENSIVES [Concomitant]
  4. ANTIINFLAMMATORY AGENTS [Concomitant]

REACTIONS (4)
  - Myocardial infarction [Fatal]
  - Face oedema [Unknown]
  - Gait disturbance [Unknown]
  - Oedema peripheral [Unknown]
